FAERS Safety Report 5925122-5 (Version None)
Quarter: 2008Q4

REPORT INFORMATION
  Report Type: 
  Country: None (occurrence: None)
  Receive Date: 20081021
  Receipt Date: 20081009
  Transmission Date: 20090506
  Serious: Yes (Hospitalization)
  Sender: FDA-Public Use
  Company Number: US-WYE-H06314608

PATIENT
  Sex: Female

DRUGS (3)
  1. ADVIL [Suspect]
     Indication: PREMEDICATION
     Dosage: UNKNOWN
     Route: 048
     Dates: start: 20070101, end: 20070101
  2. ADVIL [Suspect]
     Indication: PAIN
  3. REBIF [Suspect]
     Indication: MULTIPLE SCLEROSIS
     Dosage: 44 MCG 3 TIMES PER WEEK
     Route: 058
     Dates: start: 20050801

REACTIONS (3)
  - DEHYDRATION [None]
  - SMALL INTESTINAL OBSTRUCTION [None]
  - SMALL INTESTINE ULCER [None]
